FAERS Safety Report 25156314 (Version 1)
Quarter: 2025Q2

REPORT INFORMATION
  Report Type: Spontaneous
  Country: US (occurrence: US)
  Receive Date: 20250403
  Receipt Date: 20250403
  Transmission Date: 20250717
  Serious: Yes (Other)
  Sender: MEDIMETRIKS
  Company Number: US-MEDIMETRIKS-2025-US-016538

PATIENT
  Age: 63 Year
  Sex: Male
  Weight: 107 kg

DRUGS (4)
  1. VANCOMYCIN [Suspect]
     Active Substance: VANCOMYCIN
     Indication: Septic shock
  2. MEROPENEM [Suspect]
     Active Substance: MEROPENEM
     Indication: Septic shock
  3. LIDOCAINE [Suspect]
     Active Substance: LIDOCAINE
     Indication: Product used for unknown indication
     Route: 061
  4. LIDOCAINE\PRILOCAINE [Suspect]
     Active Substance: LIDOCAINE\PRILOCAINE
     Indication: Product used for unknown indication
     Route: 061

REACTIONS (1)
  - Methaemoglobinaemia [Unknown]
